FAERS Safety Report 12493249 (Version 2)
Quarter: 2016Q3

REPORT INFORMATION
  Report Type: Spontaneous
  Country: BR (occurrence: BR)
  Receive Date: 20160623
  Receipt Date: 20160711
  Transmission Date: 20161109
  Serious: Yes (Death)
  Sender: FDA-Public Use
  Company Number: BR-BAYER-2016-121756

PATIENT
  Age: 61 Year
  Sex: Female

DRUGS (1)
  1. ULTRAVIST [Suspect]
     Active Substance: IOPROMIDE
     Indication: COMPUTERISED TOMOGRAM ABDOMEN
     Dosage: 50 ML, ONCE
     Route: 042
     Dates: start: 20160620, end: 20160620

REACTIONS (3)
  - Dyspnoea [Fatal]
  - Cardio-respiratory arrest [Fatal]
  - Cyanosis [Fatal]

NARRATIVE: CASE EVENT DATE: 20160620
